FAERS Safety Report 9502836 (Version 2)
Quarter: 2013Q3

REPORT INFORMATION
  Report Type: Spontaneous
  Country: GB (occurrence: GB)
  Receive Date: 20130906
  Receipt Date: 20130906
  Transmission Date: 20140515
  Serious: Yes (Congenital Anomaly)
  Sender: FDA-Public Use
  Company Number: GB-JNJFOC-JAUK4876

PATIENT
  Sex: 0

DRUGS (3)
  1. VERMOX [Suspect]
     Indication: PRODUCT USED FOR UNKNOWN INDICATION
     Route: 064
     Dates: start: 19870415
  2. TRINORDIOL(R) [Concomitant]
     Route: 048
     Dates: start: 19820630, end: 19870515
  3. TRINORDIOL(R) [Concomitant]
     Route: 015

REACTIONS (2)
  - Syndactyly [Not Recovered/Not Resolved]
  - Foetal exposure during pregnancy [Recovered/Resolved]
